FAERS Safety Report 5986461-5 (Version None)
Quarter: 2008Q4

REPORT INFORMATION
  Report Type: 
  Country: None (occurrence: None)
  Receive Date: 20081209
  Receipt Date: 20080902
  Transmission Date: 20090506
  Serious: No
  Sender: FDA-Public Use
  Company Number: US-AMGEN-KDL295907

PATIENT
  Sex: Female

DRUGS (2)
  1. ENBREL [Suspect]
     Indication: RHEUMATOID ARTHRITIS
     Route: 058
     Dates: start: 20080709
  2. METHOTREXATE [Concomitant]
     Route: 048
     Dates: start: 20071101

REACTIONS (9)
  - ERYTHEMA [None]
  - FEELING HOT [None]
  - HYPOAESTHESIA [None]
  - INFECTED BITES [None]
  - LOCAL SWELLING [None]
  - MUSCULAR WEAKNESS [None]
  - MUSCULOSKELETAL STIFFNESS [None]
  - PAIN [None]
  - PARAESTHESIA [None]
